FAERS Safety Report 8811017 (Version 2)
Quarter: 2013Q1

REPORT INFORMATION
  Report Type: Report from Study
  Country: DE (occurrence: DE)
  Receive Date: 20120927
  Receipt Date: 20130206
  Transmission Date: 20140127
  Serious: Yes (Hospitalization)
  Sender: FDA-Public Use
  Company Number: DE-UCBSA-067369

PATIENT
  Age: 72 Year
  Sex: Female

DRUGS (7)
  1. CIMZIA [Suspect]
     Indication: RHEUMATOID ARTHRITIS
     Dosage: DOSE: 200MG
     Route: 058
     Dates: start: 201104, end: 20120419
  2. PREDNISOLONE [Concomitant]
  3. BISOPROLOL [Concomitant]
  4. RAMIPRIL [Concomitant]
  5. PANTOZOL [Concomitant]
  6. METHOTREXATE [Concomitant]
  7. ALLOPURINOL [Concomitant]

REACTIONS (1)
  - Ophthalmic herpes zoster [Recovered/Resolved]
